FAERS Safety Report 6195338-4 (Version None)
Quarter: 2009Q2

REPORT INFORMATION
  Report Type: 
  Country: None (occurrence: None)
  Receive Date: 20090519
  Receipt Date: 20090508
  Transmission Date: 20091009
  Serious: Yes (Hospitalization)
  Sender: FDA-Public Use
  Company Number: US-BRISTOL-MYERS SQUIBB COMPANY-14568547

PATIENT
  Age: 43 Year
  Sex: Female
  Weight: 78 kg

DRUGS (9)
  1. IXABEPILONE [Suspect]
     Indication: BREAST CANCER
     Dosage: INITIAL DOSE ON 19JAN2009 DISCONTINUED ON 16APR2009
     Route: 042
     Dates: start: 20090323, end: 20090323
  2. LORTAB [Concomitant]
     Indication: BACK PAIN
     Route: 048
     Dates: start: 20080415
  3. AMBIEN [Concomitant]
     Indication: INSOMNIA
     Route: 048
     Dates: start: 20081115
  4. POTASSIUM CHLORIDE [Concomitant]
     Indication: HYPERTENSION
     Dosage: 1 DF = 20MEQ/L
     Dates: start: 20081215
  5. ZESTORETIC [Concomitant]
     Indication: HYPERTENSION
     Dates: start: 20081215
  6. LOVAZA [Concomitant]
     Indication: HYPERCHOLESTEROLAEMIA
     Route: 048
     Dates: start: 20081115
  7. LISINOPRIL AND HYDROCHLOROTHIAZIDE [Concomitant]
     Route: 048
  8. ONDANSETRON [Concomitant]
     Route: 048
  9. TYLENOL (CAPLET) [Concomitant]
     Route: 048

REACTIONS (1)
  - COLITIS ISCHAEMIC [None]
